FAERS Safety Report 10083302 (Version 1)
Quarter: 2014Q2

REPORT INFORMATION
  Report Type: Spontaneous
  Country: US (occurrence: None)
  Receive Date: 20140415
  Receipt Date: 20140415
  Transmission Date: 20141212
  Serious: Yes (Disabling)
  Sender: FDA-Public Use
  Company Number: None

PATIENT
  Age: 50 Year
  Sex: Male
  Weight: 70.31 kg

DRUGS (1)
  1. OXYCONTIN [Suspect]
     Indication: PAIN
     Dosage: PRN AS NEEEDED
     Route: 048
     Dates: start: 20140408, end: 20140408

REACTIONS (5)
  - Headache [None]
  - Cardiac disorder [None]
  - Feeling abnormal [None]
  - Insomnia [None]
  - Activities of daily living impaired [None]
